FAERS Safety Report 4886060-2 (Version None)
Quarter: 2006Q1

REPORT INFORMATION
  Report Type: 
  Country: None (occurrence: None)
  Receive Date: 20060118
  Receipt Date: 20060118
  Transmission Date: 20060701
  Serious: Yes (Hospitalization)
  Sender: FDA-Public Use
  Company Number: None

PATIENT
  Sex: Male
  Weight: 114 kg

DRUGS (6)
  1. EPIRUBICIN [Suspect]
     Indication: ADENOCARCINOMA
     Dosage: SEE IMAGE
     Dates: start: 20051130
  2. EPIRUBICIN [Suspect]
     Indication: GASTROOESOPHAGEAL CANCER
     Dosage: SEE IMAGE
     Dates: start: 20051130
  3. CISPLATIN [Suspect]
     Dosage: SEE IMAGE
     Dates: start: 20051130
  4. FLUOROURACIL [Suspect]
     Dosage: SEE IMAGE
     Dates: start: 20051130, end: 20060105
  5. FLUOROURACIL [Suspect]
     Dosage: SEE IMAGE
     Dates: start: 20050111
  6. RT [Suspect]
     Dosage: SEE IMAGE
     Dates: start: 20051130

REACTIONS (1)
  - VOMITING [None]
